FAERS Safety Report 11516169 (Version 1)
Quarter: 2015Q3

REPORT INFORMATION
  Report Type: Spontaneous
  Country: FR (occurrence: FR)
  Receive Date: 20150917
  Receipt Date: 20150917
  Transmission Date: 20151125
  Serious: Yes (Death)
  Sender: FDA-Public Use
  Company Number: FR-ORION CORPORATION ORION PHARMA-TREX2015-0568

PATIENT
  Age: 83 Year
  Sex: Female

DRUGS (12)
  1. SPECIAFOLDINE [Concomitant]
     Active Substance: FOLIC ACID
     Dosage: STRENGTH: 5 MG
     Route: 065
  2. ZYMAD [Concomitant]
     Active Substance: CHOLECALCIFEROL
     Dosage: STRENGTH: 80000 IU
     Route: 065
  3. DAFALGAN [Concomitant]
     Active Substance: ACETAMINOPHEN
     Indication: PAIN
     Route: 065
  4. METHOTREXATE (METHOTREXATE SODIUM) [Suspect]
     Active Substance: METHOTREXATE SODIUM
     Indication: RHEUMATOID ARTHRITIS
     Dosage: STRENGTH: 10 MG
     Route: 048
     Dates: start: 20150824, end: 20150827
  5. BISOCE [Concomitant]
     Active Substance: BISOPROLOL
     Dosage: STRENGTH: 1.25 MG
     Route: 065
  6. PREDNISONE. [Concomitant]
     Active Substance: PREDNISONE
     Dosage: STRENGTH: 5 MG
     Route: 065
  7. LOXEN L P [Concomitant]
     Dosage: STRENGTH: 50 MG
     Route: 065
  8. ZYMAD [Concomitant]
     Active Substance: CHOLECALCIFEROL
     Route: 065
  9. COVERSYL [Concomitant]
     Active Substance: PERINDOPRIL
     Dosage: STRENGTH: 5 MG
     Route: 065
  10. SPAGULAX [Concomitant]
     Active Substance: PLANTAGO OVATA SEED
     Route: 065
  11. COLPOTROPHINE [Concomitant]
     Active Substance: PROMESTRIENE
     Route: 065
  12. XALATAN [Concomitant]
     Active Substance: LATANOPROST
     Dosage: STRENGTH: 0.005%
     Route: 047

REACTIONS (11)
  - Overdose [Fatal]
  - Stomatitis [Fatal]
  - Septic shock [Fatal]
  - Drug dispensing error [Recovered/Resolved]
  - Back pain [Unknown]
  - Febrile bone marrow aplasia [Fatal]
  - Inappropriate schedule of drug administration [Recovered/Resolved]
  - Diarrhoea [Unknown]
  - Somnolence [Unknown]
  - Sluggishness [Unknown]
  - Dysphagia [Unknown]

NARRATIVE: CASE EVENT DATE: 201508
